FAERS Safety Report 7285391-9 (Version None)
Quarter: 2011Q1

REPORT INFORMATION
  Report Type: 
  Country: None (occurrence: None)
  Receive Date: 20110210
  Receipt Date: 20110204
  Transmission Date: 20110831
  Serious: Yes (Death)
  Sender: FDA-Public Use
  Company Number: GB-BAXTER-2011BH002829

PATIENT
  Age: 88 Year
  Sex: Female

DRUGS (13)
  1. AMOXICILLIN [Suspect]
     Indication: CHOLECYSTITIS
     Route: 042
     Dates: start: 20090909
  2. ENOXAPARIN SODIUM [Concomitant]
     Indication: PRODUCT USED FOR UNKNOWN INDICATION
     Route: 058
  3. SIMVASTATIN [Concomitant]
     Indication: PRODUCT USED FOR UNKNOWN INDICATION
     Route: 065
  4. TAZOCIN [Suspect]
     Indication: CHOLECYSTITIS
     Route: 042
     Dates: start: 20090909, end: 20090909
  5. BISOPROLOL [Concomitant]
     Indication: PRODUCT USED FOR UNKNOWN INDICATION
     Route: 065
  6. LEVOTHYROXINE SODIUM [Concomitant]
     Indication: PRODUCT USED FOR UNKNOWN INDICATION
     Route: 065
  7. ISOSORBIDE MONONITRATE [Concomitant]
     Indication: PRODUCT USED FOR UNKNOWN INDICATION
     Route: 065
  8. METRONIDAZOLE IN PLASTIC CONTAINER [Suspect]
     Indication: CHOLECYSTITIS
     Route: 042
     Dates: start: 20090909
  9. NICORANDIL [Concomitant]
     Indication: PRODUCT USED FOR UNKNOWN INDICATION
     Route: 065
  10. PARACETAMOL [Concomitant]
     Indication: PRODUCT USED FOR UNKNOWN INDICATION
     Route: 065
  11. CLOPIDOGREL [Concomitant]
     Indication: PRODUCT USED FOR UNKNOWN INDICATION
     Route: 065
  12. HYPROMELLOSE [Concomitant]
     Indication: PRODUCT USED FOR UNKNOWN INDICATION
     Route: 031
  13. TAZOCIN [Suspect]
     Route: 042
     Dates: start: 20090910, end: 20090914

REACTIONS (11)
  - CLOSTRIDIAL INFECTION [None]
  - MALAISE [None]
  - ANAEMIA [None]
  - HYPOPHAGIA [None]
  - CYANOSIS [None]
  - DIARRHOEA [None]
  - BLOOD PRESSURE DECREASED [None]
  - GENERAL PHYSICAL HEALTH DETERIORATION [None]
  - ABDOMINAL PAIN LOWER [None]
  - ASTHENIA [None]
  - WEIGHT DECREASED [None]
